FAERS Safety Report 6438605-9 (Version None)
Quarter: 2009Q4

REPORT INFORMATION
  Report Type: 
  Country: None (occurrence: None)
  Receive Date: 20091112
  Receipt Date: 20091102
  Transmission Date: 20100525
  Serious: Yes (Hospitalization)
  Sender: FDA-Public Use
  Company Number: DE-ELI_LILLY_AND_COMPANY-DE200911001926

PATIENT
  Age: 37 Year
  Sex: Male

DRUGS (8)
  1. ZYPREXA [Suspect]
     Dosage: 10 MG, DAILY (1/D)
     Dates: start: 20070615, end: 20070617
  2. ZYPREXA [Suspect]
     Dosage: 15 MG, DAILY (1/D)
     Dates: start: 20070618, end: 20070618
  3. ZYPREXA [Suspect]
     Dosage: 20 MG, DAILY (1/D)
     Dates: start: 20070619, end: 20070713
  4. ZYPREXA [Suspect]
     Dosage: 15 MG, DAILY (1/D)
     Dates: start: 20070714, end: 20070724
  5. EUNERPAN [Concomitant]
     Dosage: 25 MG, DAILY (1/D)
     Dates: start: 20070620, end: 20070702
  6. EUNERPAN [Concomitant]
     Dosage: 25 MG, DAILY (1/D)
     Dates: start: 20070716, end: 20070722
  7. ORFIRIL /00228502/ [Concomitant]
     Dosage: 100 MG, UNK
     Dates: start: 20070801, end: 20070802
  8. ORFIRIL /00228502/ [Concomitant]
     Dosage: 1200 MG, UNK
     Dates: start: 20070803, end: 20070810

REACTIONS (1)
  - HEPATIC FAILURE [None]
